FAERS Safety Report 7360369-5 (Version None)
Quarter: 2011Q1

REPORT INFORMATION
  Report Type: 
  Country: None (occurrence: None)
  Receive Date: 20110318
  Receipt Date: 20110228
  Transmission Date: 20110831
  Serious: Yes (Hospitalization, Other)
  Sender: FDA-Public Use
  Company Number: US-BAYER-200941415NA

PATIENT
  Sex: Female
  Weight: 56.818 kg

DRUGS (4)
  1. NAPROXEN [Concomitant]
     Route: 065
  2. UNKNOWN DRUG [Concomitant]
     Indication: MIGRAINE
     Route: 065
  3. YAZ [Suspect]
     Indication: PRODUCT USED FOR UNKNOWN INDICATION
     Dosage: STOP DATE: JUL/AUG-2008
     Dates: start: 20070901, end: 20080615
  4. ACETAMINOPHEN [Concomitant]
     Dosage: USE: OFTEN NOS
     Route: 065

REACTIONS (6)
  - LIVER FUNCTION TEST ABNORMAL [None]
  - PAIN [None]
  - ABDOMINAL PAIN [None]
  - CHOLECYSTITIS [None]
  - BILIARY COLIC [None]
  - CHOLELITHIASIS [None]
